FAERS Safety Report 8204884-0 (Version None)
Quarter: 2012Q1

REPORT INFORMATION
  Report Type: 
  Country: None (occurrence: None)
  Receive Date: 20120313
  Receipt Date: 20120229
  Transmission Date: 20120608
  Serious: Yes (Hospitalization)
  Sender: FDA-Public Use
  Company Number: US-ELI_LILLY_AND_COMPANY-US201202007413

PATIENT
  Sex: Female

DRUGS (9)
  1. VITAMINS NOS [Concomitant]
     Dosage: UNK, QD
  2. FORTEO [Suspect]
     Indication: OSTEOPOROSIS
     Dosage: 20 UG, QD
     Dates: start: 20111001
  3. FORTEO [Suspect]
     Dosage: 20 UG, QD
  4. GLUCOSAMINE + CHONDROITIN [Concomitant]
     Dosage: UNK, QD
  5. VITAMIN D [Concomitant]
     Dosage: 4000 IU, QD
  6. CLORAZEPATE DIPOTASSIUM [Concomitant]
     Dosage: UNK, PRN
  7. TUMS                               /00193601/ [Concomitant]
     Indication: BLOOD CALCIUM ABNORMAL
  8. SYNTHROID [Concomitant]
     Dosage: UNK, QD
  9. MECLIZINE [Concomitant]
     Dosage: UNK, PRN

REACTIONS (2)
  - SPEECH DISORDER [None]
  - COMPLICATED MIGRAINE [None]
